FAERS Safety Report 9412377 (Version 1)
Quarter: 2013Q2

REPORT INFORMATION
  Report Type: Spontaneous
  Country: JP (occurrence: None)
  Receive Date: 20130509
  Receipt Date: 20130509
  Transmission Date: 20140414
  Serious: No
  Sender: FDA-Public Use
  Company Number: SPI201300164

PATIENT
  Age: 83 Year
  Sex: Female

DRUGS (10)
  1. AMITIZA (LUBIPROSTONE) CAPSULE, 24 MCG [Suspect]
     Indication: BOWEL MOVEMENT IRREGULARITY
     Route: 048
     Dates: start: 20130122, end: 201301
  2. FEBUXOSTAT (FEBUXOSTAT) [Concomitant]
  3. MUCOSTA (REBAMIPIDE) [Concomitant]
  4. JUVELA (TOCOPHERYLE NICOTINATE) [Concomitant]
  5. ATELEC (CLINIDIPINE) [Concomitant]
  6. CERCINE (DIAZEPAM) [Concomitant]
  7. AVAPRO (IRBESARTAN) [Concomitant]
  8. KAYEXALATE (SODIUM POLYSTYRENE SULFONATE) [Concomitant]
  9. NITROPEN (GLYCERYL TRINITRATE) [Concomitant]
  10. NESP (DARBEPOETIN ALFA) [Concomitant]

REACTIONS (5)
  - Dehydration [None]
  - Pyrexia [None]
  - Diarrhoea [None]
  - Rash [None]
  - Rash pruritic [None]
